FAERS Safety Report 19125880 (Version 1)
Quarter: 2021Q2

REPORT INFORMATION
  Report Type: Spontaneous
  Country: US (occurrence: US)
  Receive Date: 20210412
  Receipt Date: 20210412
  Transmission Date: 20210717
  Serious: Yes (Other)
  Sender: FDA-Public Use
  Company Number: None

PATIENT
  Sex: Female

DRUGS (1)
  1. ZALEPLON 10 MG [Suspect]
     Active Substance: ZALEPLON

REACTIONS (4)
  - Paraesthesia [None]
  - Headache [None]
  - Nausea [None]
  - Diarrhoea [None]
